FAERS Safety Report 12581833 (Version 2)
Quarter: 2016Q3

REPORT INFORMATION
  Report Type: Spontaneous
  Country: JP (occurrence: JP)
  Receive Date: 20160722
  Receipt Date: 20160729
  Transmission Date: 20161109
  Serious: Yes (Hospitalization, Other)
  Sender: FDA-Public Use
  Company Number: JP-ORION CORPORATION ORION PHARMA-ENTC2016-0392

PATIENT
  Sex: Female

DRUGS (6)
  1. MENESIT [Concomitant]
     Active Substance: CARBIDOPA\LEVODOPA
     Route: 065
     Dates: end: 201606
  2. CILOSTAZOL. [Concomitant]
     Active Substance: CILOSTAZOL
     Route: 065
     Dates: end: 20160704
  3. STALEVO [Suspect]
     Active Substance: CARBIDOPA\ENTACAPONE\LEVODOPA
     Indication: PARKINSON^S DISEASE
     Dosage: STRENGTH: 100/10/100 MG
     Route: 048
     Dates: start: 201606, end: 201607
  4. METLIGINE [Concomitant]
     Active Substance: MIDODRINE HYDROCHLORIDE
     Route: 065
     Dates: end: 20160704
  5. MENESIT [Concomitant]
     Active Substance: CARBIDOPA\LEVODOPA
     Route: 065
     Dates: start: 201606
  6. DONEPEZIL. [Concomitant]
     Active Substance: DONEPEZIL
     Route: 065
     Dates: end: 20160704

REACTIONS (2)
  - Pneumonia aspiration [Recovered/Resolved]
  - Tachycardia [Unknown]

NARRATIVE: CASE EVENT DATE: 20160704
